FAERS Safety Report 16290586 (Version 1)
Quarter: 2019Q2

REPORT INFORMATION
  Report Type: Spontaneous
  Country: IT (occurrence: IT)
  Receive Date: 20190509
  Receipt Date: 20190509
  Transmission Date: 20190711
  Serious: Yes (Hospitalization)
  Sender: FDA-Public Use
  Company Number: IT-TEVA-2019-IT-1045750

PATIENT
  Age: 39 Year
  Sex: Female

DRUGS (3)
  1. CEFTRIAXONE. [Suspect]
     Active Substance: CEFTRIAXONE
     Indication: SOFT TISSUE INFECTION
     Route: 042
     Dates: start: 20190311, end: 20190313
  2. FLUCONAZOLE. [Suspect]
     Active Substance: FLUCONAZOLE
     Indication: CANDIDA INFECTION
     Route: 048
     Dates: start: 20190314, end: 20190314
  3. FLUCACID [Suspect]
     Active Substance: FLUCLOXACILLIN SODIUM
     Indication: SOFT TISSUE INFECTION
     Route: 048
     Dates: start: 20190313, end: 20190314

REACTIONS (3)
  - Rash macular [Recovered/Resolved]
  - Rash pustular [Recovered/Resolved]
  - Erythema [Recovered/Resolved]

NARRATIVE: CASE EVENT DATE: 20190316
